FAERS Safety Report 6807085-3 (Version None)
Quarter: 2010Q2

REPORT INFORMATION
  Report Type: 
  Country: None (occurrence: None)
  Receive Date: 20100629
  Receipt Date: 20080807
  Transmission Date: 20101027
  Serious: No
  Sender: FDA-Public Use
  Company Number: US-PFIZER INC-2008052165

PATIENT
  Sex: Female
  Weight: 109.09 kg

DRUGS (4)
  1. REVATIO [Suspect]
     Indication: PULMONARY ARTERIAL HYPERTENSION
     Dates: start: 20080401
  2. ATACAND [Concomitant]
  3. NORVASC [Concomitant]
  4. LASIX [Concomitant]

REACTIONS (3)
  - DRUG INEFFECTIVE [None]
  - OEDEMA PERIPHERAL [None]
  - RENAL IMPAIRMENT [None]
